FAERS Safety Report 20179743 (Version 3)
Quarter: 2022Q1

REPORT INFORMATION
  Report Type: Spontaneous
  Country: JP (occurrence: JP)
  Receive Date: 20211214
  Receipt Date: 20220304
  Transmission Date: 20220424
  Serious: Yes (Hospitalization, Other)
  Sender: FDA-Public Use
  Company Number: JP-NOVARTISPH-NVSJ2021JP020324

PATIENT
  Age: 53 Year
  Sex: Male

DRUGS (1)
  1. TASIGNA [Suspect]
     Active Substance: NILOTINIB
     Indication: Chronic myeloid leukaemia
     Dosage: UNK
     Route: 048
     Dates: start: 2018, end: 2020

REACTIONS (6)
  - Coronary artery stenosis [Recovered/Resolved]
  - Angina pectoris [Recovered/Resolved]
  - Arteriosclerosis coronary artery [Recovered/Resolved]
  - Angina pectoris [Recovered/Resolved]
  - Chronic kidney disease [Not Recovered/Not Resolved]
  - Dyslipidaemia [Not Recovered/Not Resolved]

NARRATIVE: CASE EVENT DATE: 20200101
